FAERS Safety Report 4561318-5 (Version None)
Quarter: 2005Q1

REPORT INFORMATION
  Report Type: 
  Country: None (occurrence: None)
  Receive Date: 20050121
  Receipt Date: 20050105
  Transmission Date: 20050727
  Serious: Yes (Hospitalization)
  Sender: FDA-Public Use
  Company Number: 9665

PATIENT
  Age: 66 Year
  Sex: Male

DRUGS (5)
  1. CARBOPLATIN [Suspect]
     Dosage: 400 MG
     Route: 042
     Dates: start: 20040427, end: 20040427
  2. DEXAMETHASONE [Suspect]
     Dosage: 63 MG
     Route: 042
     Dates: start: 20040427, end: 20040511
  3. PACLITAXEL [Suspect]
     Dosage: 520 MG
     Route: 042
     Dates: start: 20040427, end: 20040511
  4. RANITIDINE [Suspect]
     Dosage: 150 MG
     Route: 042
     Dates: start: 20040427, end: 20040511
  5. DEXCHLORPHENIRAMINE [Suspect]
     Dosage: 15 MG
     Route: 042
     Dates: start: 20040427, end: 20040511

REACTIONS (1)
  - INTERSTITIAL LUNG DISEASE [None]
